FAERS Safety Report 15590537 (Version 3)
Quarter: 2020Q3

REPORT INFORMATION
  Report Type: Spontaneous
  Country: US (occurrence: US)
  Receive Date: 20181106
  Receipt Date: 20190212
  Transmission Date: 20201104
  Serious: Yes (Death, Hospitalization)
  Sender: FDA-Public Use
  Company Number: US-CELGENEUS-USA-20181010094

PATIENT
  Age: 75 Year
  Sex: Female
  Weight: 100.1 kg

DRUGS (7)
  1. ABRAXANE [Suspect]
     Active Substance: PACLITAXEL
     Route: 041
     Dates: start: 20180904, end: 20180904
  2. MEDI4736 (DURVALUMAB) [Suspect]
     Active Substance: DURVALUMAB
     Indication: DUCTAL ADENOCARCINOMA OF PANCREAS
     Route: 042
     Dates: start: 20180821, end: 20180821
  3. MEDI4736 (DURVALUMAB) [Suspect]
     Active Substance: DURVALUMAB
     Route: 042
     Dates: start: 20180904, end: 20180904
  4. GEMCITABINE. [Suspect]
     Active Substance: GEMCITABINE
     Indication: DUCTAL ADENOCARCINOMA OF PANCREAS
     Route: 041
     Dates: start: 20180821, end: 20180821
  5. GEMCITABINE. [Suspect]
     Active Substance: GEMCITABINE
     Route: 041
     Dates: start: 20180904, end: 20180904
  6. ABRAXANE [Suspect]
     Active Substance: PACLITAXEL
     Indication: DUCTAL ADENOCARCINOMA OF PANCREAS
     Route: 041
     Dates: start: 20180821, end: 20180821
  7. OLECLUMAB. [Suspect]
     Active Substance: OLECLUMAB
     Indication: DUCTAL ADENOCARCINOMA OF PANCREAS
     Route: 042
     Dates: start: 20180821, end: 20180821

REACTIONS (1)
  - Cellulitis [Fatal]

NARRATIVE: CASE EVENT DATE: 20180917
